FAERS Safety Report 20219820 (Version 1)
Quarter: 2021Q4

REPORT INFORMATION
  Report Type: Spontaneous
  Country: US (occurrence: US)
  Receive Date: 20211222
  Receipt Date: 20211222
  Transmission Date: 20220303
  Serious: No
  Sender: FDA-Public Use
  Company Number: US-UPSHER-SMITH LABORATORIES, LLC-2021USL00451

PATIENT
  Sex: Female
  Weight: 66.667 kg

DRUGS (4)
  1. KLOR-CON M [Suspect]
     Active Substance: POTASSIUM CHLORIDE
     Dosage: UPSHER-SMITH PRODUCT
  2. KLOR-CON M [Suspect]
     Active Substance: POTASSIUM CHLORIDE
     Dosage: SANDOZ PRODUCT
     Dates: end: 202105
  3. KLOR-CON M [Suspect]
     Active Substance: POTASSIUM CHLORIDE
     Dosage: 30 MEQ, 1X/DAY
     Dates: start: 202105
  4. ^MESTRODIOL^ [Concomitant]

REACTIONS (2)
  - Pruritus [Unknown]
  - Rash [Unknown]
